FAERS Safety Report 8011288-2 (Version None)
Quarter: 2011Q4

REPORT INFORMATION
  Report Type: 
  Country: None (occurrence: None)
  Receive Date: 20111227
  Receipt Date: 20111227
  Transmission Date: 20120403
  Serious: Yes (Hospitalization)
  Sender: FDA-Public Use
  Company Number: None

PATIENT
  Age: 22 Year
  Sex: Female
  Weight: 63.502 kg

DRUGS (1)
  1. BACTRIM [Suspect]
     Indication: SKIN INFECTION
     Dates: start: 20110721, end: 20110801

REACTIONS (3)
  - WHITE BLOOD CELL COUNT DECREASED [None]
  - PYREXIA [None]
  - RASH [None]
